FAERS Safety Report 6511466-5 (Version None)
Quarter: 2009Q4

REPORT INFORMATION
  Report Type: 
  Country: None (occurrence: None)
  Receive Date: 20091217
  Receipt Date: 20091208
  Transmission Date: 20100525
  Serious: Yes (Disabling)
  Sender: FDA-Public Use
  Company Number: 452090

PATIENT
  Age: 13 Year
  Sex: Female

DRUGS (7)
  1. METHOTREXATE [Suspect]
     Indication: RHABDOMYOSARCOMA
     Dosage: 15 MG/M2, INTRATHECAL
     Route: 037
  2. HYDROCORTISONE [Suspect]
     Indication: RHABDOMYOSARCOMA
     Dosage: 30 MG/M2, INTRATHECAL
     Route: 037
  3. CYTARABINE [Suspect]
     Indication: RHABDOMYOSARCOMA
     Dosage: 60 MG/M2, INTRATHECAL
     Route: 037
  4. (THERAPEUTIC RADIOPHARMACEUTICALS) [Suspect]
     Indication: RHABDOMYOSARCOMA
     Dosage: 50.4 GY,
  5. VINCRISTINE [Concomitant]
  6. (ACTINOMYCIN D) [Concomitant]
  7. CYCLOPHOSPHAMIDE [Concomitant]

REACTIONS (1)
  - MYELITIS [None]
